FAERS Safety Report 18182226 (Version 2)
Quarter: 2020Q4

REPORT INFORMATION
  Report Type: Spontaneous
  Country: US (occurrence: US)
  Receive Date: 20200821
  Receipt Date: 20201029
  Transmission Date: 20210113
  Serious: Yes (Other)
  Sender: FDA-Public Use
  Company Number: US-009507513-2008USA009893

PATIENT
  Sex: Female
  Weight: 141.5 kg

DRUGS (1)
  1. NEXPLANON [Suspect]
     Active Substance: ETONOGESTREL
     Indication: CONTRACEPTION
     Dosage: 1 IMPLANT (68 MG), EVERY THREE YEARS
     Route: 059
     Dates: start: 20180430, end: 20200827

REACTIONS (4)
  - Uterine haemorrhage [Unknown]
  - Metrorrhagia [Unknown]
  - Polymenorrhoea [Unknown]
  - Menorrhagia [Unknown]
